FAERS Safety Report 19045457 (Version 4)
Quarter: 2022Q3

REPORT INFORMATION
  Report Type: Report from Study
  Country: CA (occurrence: CA)
  Receive Date: 20210323
  Receipt Date: 20220712
  Transmission Date: 20221027
  Serious: Yes (Hospitalization, Other)
  Sender: FDA-Public Use
  Company Number: CA-GLAXOSMITHKLINE-CA2021AMR041610

PATIENT

DRUGS (2)
  1. MEPOLIZUMAB [Suspect]
     Active Substance: MEPOLIZUMAB
     Indication: Asthma
     Dosage: 100 MG, Z (MONTHLY)
     Route: 042
     Dates: start: 20180607
  2. MEPOLIZUMAB [Suspect]
     Active Substance: MEPOLIZUMAB
     Dosage: 100 MG, Z
     Route: 058

REACTIONS (6)
  - Dyspnoea [Unknown]
  - Back pain [Unknown]
  - Asthenia [Unknown]
  - Fluid retention [Unknown]
  - Cardiac failure [Recovering/Resolving]
  - Rib fracture [Recovering/Resolving]

NARRATIVE: CASE EVENT DATE: 20210101
